FAERS Safety Report 5501387-9 (Version None)
Quarter: 2007Q4

REPORT INFORMATION
  Report Type: 
  Country: None (occurrence: None)
  Receive Date: 20071026
  Receipt Date: 20071010
  Transmission Date: 20080405
  Serious: Yes (Other)
  Sender: FDA-Public Use
  Company Number: 8027538

PATIENT
  Age: 11 Year
  Sex: Male
  Weight: 32 kg

DRUGS (3)
  1. EQUASYM [Suspect]
     Dosage: 20 MG 1/D
     Dates: start: 20061212
  2. EQUASYM [Suspect]
  3. EQUASYM [Suspect]
     Dosage: 10 MG /D
     Dates: start: 20070101

REACTIONS (8)
  - ABDOMINAL PAIN [None]
  - ANOREXIA [None]
  - DEPRESSED MOOD [None]
  - DEPRESSION [None]
  - DIARRHOEA [None]
  - HEADACHE [None]
  - MOOD ALTERED [None]
  - WEIGHT DECREASED [None]
